FAERS Safety Report 10261083 (Version 1)
Quarter: 2014Q2

REPORT INFORMATION
  Report Type: Spontaneous
  Country: US (occurrence: US)
  Receive Date: 20140626
  Receipt Date: 20140626
  Transmission Date: 20141212
  Serious: No
  Sender: FDA-Public Use
  Company Number: US-DRREDDYS-USA/USA/14/0038841

PATIENT
  Age: 68 Year
  Sex: Male
  Weight: 74.91 kg

DRUGS (3)
  1. ZIPRASIDONE CAPSULES 20 MG, 40 MG, 60 MG + 80 MG [Suspect]
     Indication: SCHIZOPHRENIA
     Route: 048
     Dates: start: 201402
  2. ZOLPIDEM [Concomitant]
     Indication: SLEEP DISORDER
     Route: 065
  3. LORAZEPAM [Concomitant]
     Indication: SLEEP DISORDER
     Route: 065

REACTIONS (2)
  - Drug dose omission [Unknown]
  - No adverse event [Unknown]
